FAERS Safety Report 22952650 (Version 3)
Quarter: 2023Q4

REPORT INFORMATION
  Report Type: Report from Study
  Country: FR (occurrence: None)
  Receive Date: 20230918
  Receipt Date: 20231025
  Transmission Date: 20240109
  Serious: Yes (Hospitalization)
  Sender: FDA-Public Use
  Company Number: FR-ROCHE-3421591

PATIENT
  Age: 63 Year
  Sex: Female
  Weight: 79 kg

DRUGS (18)
  1. ATEZOLIZUMAB [Suspect]
     Active Substance: ATEZOLIZUMAB
     Indication: Breast cancer metastatic
     Dosage: ON 14-SEP-2022 RECEIVED MOST RECENT DOSE 1200 MG OF STUDY DRUG PRIOR TO AE
     Route: 042
     Dates: start: 20220802
  2. ACUPAN [Concomitant]
     Active Substance: NEFOPAM HYDROCHLORIDE
     Indication: Pyrexia
     Dosage: NO
     Dates: start: 20220806, end: 20221027
  3. DOLIPRANE [Concomitant]
     Active Substance: ACETAMINOPHEN
     Dosage: NO
     Dates: start: 20220823, end: 20220930
  4. BACTRIM [Concomitant]
     Active Substance: SULFAMETHOXAZOLE\TRIMETHOPRIM
     Indication: Lymphopenia
     Dosage: NO
     Dates: start: 20220922, end: 20220930
  5. SPASFON [Concomitant]
     Indication: Pain
     Dosage: YES
     Dates: start: 20220915, end: 20220929
  6. LIDOCAINE [Concomitant]
     Active Substance: LIDOCAINE
     Dosage: GIVEN FOR PROPHYLAXIS IS YES ;ONGOING: NO
     Dates: start: 20220929
  7. LANSOPRAZOLE [Concomitant]
     Active Substance: LANSOPRAZOLE
     Dosage: YES
     Dates: start: 20220929, end: 20221027
  8. NALOXEGOL OXALATE [Concomitant]
     Active Substance: NALOXEGOL OXALATE
     Indication: Constipation
     Dosage: YES
     Dates: start: 20220929
  9. MOVICOL [Concomitant]
     Active Substance: POLYETHYLENE GLYCOL 3350\POTASSIUM CHLORIDE\SODIUM BICARBONATE\SODIUM CHLORIDE
     Indication: Constipation
     Dosage: YES
     Dates: start: 20220929
  10. PRIMPERAN [Concomitant]
     Active Substance: METOCLOPRAMIDE HYDROCHLORIDE
     Indication: Nausea
     Dosage: YES
     Dates: start: 20220929
  11. MIDAZOLAM [Concomitant]
     Active Substance: MIDAZOLAM
     Indication: Anxiety
     Dates: start: 20220929
  12. SOLU-MEDROL [Concomitant]
     Active Substance: METHYLPREDNISOLONE SODIUM SUCCINATE
     Dosage: YES
     Route: 048
     Dates: start: 20220929
  13. HALDOL [Concomitant]
     Active Substance: HALOPERIDOL
     Indication: Hallucination
     Dates: start: 20220929
  14. SKENAN [Concomitant]
     Active Substance: MORPHINE SULFATE
     Indication: Pain
     Route: 048
     Dates: start: 20220920
  15. OXYCODONE HYDROCHLORIDE [Concomitant]
     Active Substance: OXYCODONE HYDROCHLORIDE
     Route: 048
     Dates: start: 20220804
  16. MORPHINE SULFATE [Concomitant]
     Active Substance: MORPHINE SULFATE
     Indication: Pain
     Dosage: NO
     Route: 048
     Dates: start: 20220920
  17. NAVELBINE [Concomitant]
     Active Substance: VINORELBINE TARTRATE
     Dates: start: 20200414
  18. SODIUM CHLORIDE [Concomitant]
     Active Substance: SODIUM CHLORIDE

REACTIONS (3)
  - Cholestasis [Recovered/Resolved]
  - Hepatic failure [Recovered/Resolved]
  - Blood bilirubin increased [Recovered/Resolved]

NARRATIVE: CASE EVENT DATE: 20221013
